FAERS Safety Report 14100625 (Version 2)
Quarter: 2017Q4

REPORT INFORMATION
  Report Type: Report from Study
  Country: MX (occurrence: MX)
  Receive Date: 20171017
  Receipt Date: 20171109
  Transmission Date: 20180321
  Serious: Yes (Other)
  Sender: FDA-Public Use
  Company Number: PHHY2017MX152456

PATIENT
  Sex: Female

DRUGS (1)
  1. TEGRETOL [Suspect]
     Active Substance: CARBAMAZEPINE
     Indication: EPILEPSY
     Dosage: 2 DF, QD
     Route: 065

REACTIONS (4)
  - Gait disturbance [Unknown]
  - Muscle twitching [Unknown]
  - Road traffic accident [Unknown]
  - Pain in extremity [Unknown]
